FAERS Safety Report 19270083 (Version 1)
Quarter: 2021Q2

REPORT INFORMATION
  Report Type: Spontaneous
  Country: US (occurrence: US)
  Receive Date: 20210518
  Receipt Date: 20210518
  Transmission Date: 20210717
  Serious: Yes (Hospitalization)
  Sender: FDA-Public Use
  Company Number: None

PATIENT
  Age: 88 Year
  Sex: Female
  Weight: 70.3 kg

DRUGS (2)
  1. NEORAL [Suspect]
     Active Substance: CYCLOSPORINE
     Indication: CORONAVIRUS INFECTION
     Route: 048
     Dates: start: 20210315, end: 20210317
  2. NEORAL [Suspect]
     Active Substance: CYCLOSPORINE
     Indication: CORONAVIRUS INFECTION
     Route: 048
     Dates: start: 20210317, end: 20210322

REACTIONS (3)
  - Acute myocardial infarction [None]
  - Muscle spasms [None]
  - Chest pain [None]

NARRATIVE: CASE EVENT DATE: 20210323
